FAERS Safety Report 7583727-2 (Version None)
Quarter: 2011Q2

REPORT INFORMATION
  Report Type: 
  Country: None (occurrence: None)
  Receive Date: 20110630
  Receipt Date: 20110622
  Transmission Date: 20111010
  Serious: Yes (Other)
  Sender: FDA-Public Use
  Company Number: B0729652A

PATIENT
  Sex: Female

DRUGS (2)
  1. PACLITAXEL [Suspect]
     Route: 048
     Dates: start: 20100613
  2. TYKERB [Suspect]
     Dosage: 1500MG PER DAY
     Route: 048
     Dates: start: 20100714

REACTIONS (1)
  - NEUTROPHIL COUNT DECREASED [None]
